FAERS Safety Report 17561954 (Version 2)
Quarter: 2020Q2

REPORT INFORMATION
  Report Type: Spontaneous
  Country: FR (occurrence: FR)
  Receive Date: 20200319
  Receipt Date: 20200424
  Transmission Date: 20200713
  Serious: Yes (Hospitalization)
  Sender: FDA-Public Use
  Company Number: FR-TEVA-2020-FR-1204194

PATIENT
  Age: 60 Year
  Sex: Male
  Weight: 83 kg

DRUGS (3)
  1. PREDNISONE. [Suspect]
     Active Substance: PREDNISONE
     Indication: FASCIITIS
     Dosage: 10 MG
     Route: 048
     Dates: start: 20181224
  2. RAPAMUNE [Interacting]
     Active Substance: SIROLIMUS
     Indication: FASCIITIS
     Dosage: 4 MG
     Route: 048
     Dates: start: 20191226
  3. AMIODARONE [Suspect]
     Active Substance: AMIODARONE
     Indication: ATRIAL FIBRILLATION
     Dosage: 200 MG
     Route: 048
     Dates: start: 20200115

REACTIONS (4)
  - Hypertension [Recovering/Resolving]
  - Drug interaction [Unknown]
  - Dyslipidaemia [Not Recovered/Not Resolved]
  - Diabetes mellitus [Recovering/Resolving]

NARRATIVE: CASE EVENT DATE: 20200115
